FAERS Safety Report 9298658 (Version 3)
Quarter: 2013Q4

REPORT INFORMATION
  Report Type: Spontaneous
  Country: US (occurrence: None)
  Receive Date: 20121227
  Receipt Date: 20131226
  Transmission Date: 20140711
  Serious: Yes (Other)
  Sender: FDA-Public Use
  Company Number: PHEH2012US021861

PATIENT
  Age: 18 Year
  Sex: Male

DRUGS (9)
  1. AFINITOR [Suspect]
     Indication: TUBEROUS SCLEROSIS
     Route: 048
     Dates: start: 20120927
  2. AFINITOR [Suspect]
     Indication: ANGIOMYOLIPOMA
     Route: 048
     Dates: start: 20120927
  3. LAMICTAL [Concomitant]
  4. SABRIL [Concomitant]
  5. RISPERIDON [Concomitant]
  6. MELATONIN (MELATONIN) [Concomitant]
  7. TUMERIC (CURCUMA LONGA RHIZOME) [Concomitant]
  8. ZYRTEC [Concomitant]
  9. CALCIUM (CALCIUM) [Concomitant]

REACTIONS (2)
  - Convulsion [None]
  - Acne [None]
